FAERS Safety Report 9433969 (Version 7)
Quarter: 2015Q1

REPORT INFORMATION
  Report Type: Report from Study
  Country: NL (occurrence: NL)
  Receive Date: 20130801
  Receipt Date: 20150304
  Transmission Date: 20150721
  Serious: Yes (Other)
  Sender: FDA-Public Use
  Company Number: NL-BIOGENIDEC-2013BI067881

PATIENT
  Age: 41 Year
  Sex: Male

DRUGS (1)
  1. TYSABRI [Suspect]
     Active Substance: NATALIZUMAB
     Indication: MULTIPLE SCLEROSIS
     Route: 042
     Dates: start: 20081024, end: 20130715

REACTIONS (2)
  - Progressive multifocal leukoencephalopathy [Recovered/Resolved]
  - Immune reconstitution inflammatory syndrome [Recovered/Resolved]

NARRATIVE: CASE EVENT DATE: 20130712
